FAERS Safety Report 14757650 (Version 1)
Quarter: 2018Q2

REPORT INFORMATION
  Report Type: Spontaneous
  Country: IN (occurrence: IN)
  Receive Date: 20180413
  Receipt Date: 20180413
  Transmission Date: 20180711
  Serious: Yes (Other)
  Sender: FDA-Public Use
  Company Number: IN-DRREDDYS-USA/IND/18/0097677

PATIENT
  Age: 49 Year
  Sex: Male

DRUGS (12)
  1. DAPSONE. [Concomitant]
     Active Substance: DAPSONE
     Indication: LEPROMATOUS LEPROSY
     Route: 065
  2. PREDNISOLONE. [Suspect]
     Active Substance: PREDNISOLONE
     Indication: TYPE 2 LEPRA REACTION
     Route: 048
  3. OFLOXACIN. [Suspect]
     Active Substance: OFLOXACIN
     Indication: TYPE 2 LEPRA REACTION
     Route: 065
  4. MINOCYCLINE [Suspect]
     Active Substance: MINOCYCLINE\MINOCYCLINE HYDROCHLORIDE
     Indication: TYPE 2 LEPRA REACTION
     Route: 065
  5. CLARITHROMYCIN. [Suspect]
     Active Substance: CLARITHROMYCIN
     Indication: TYPE 2 LEPRA REACTION
     Route: 065
  6. AZATHIOPRINE. [Suspect]
     Active Substance: AZATHIOPRINE
     Indication: TYPE 2 LEPRA REACTION
     Route: 065
  7. PENTOXIFYLLINE. [Suspect]
     Active Substance: PENTOXIFYLLINE
     Indication: TYPE 2 LEPRA REACTION
     Route: 065
  8. THALIDOMIDE [Suspect]
     Active Substance: THALIDOMIDE
     Indication: TYPE 2 LEPRA REACTION
     Route: 065
  9. RIFAMPICIN [Concomitant]
     Active Substance: RIFAMPIN
     Indication: LEPROMATOUS LEPROSY
     Route: 065
  10. CLOFAZIMINE [Concomitant]
     Active Substance: CLOFAZIMINE
     Indication: LEPROMATOUS LEPROSY
     Route: 065
  11. CLOFAZIMINE [Concomitant]
     Active Substance: CLOFAZIMINE
     Route: 065
  12. AZATHIOPRINE. [Suspect]
     Active Substance: AZATHIOPRINE
     Route: 065

REACTIONS (4)
  - Oral candidiasis [Unknown]
  - Drug ineffective [Unknown]
  - Abdominal pain [Unknown]
  - Diarrhoea [Unknown]
